FAERS Safety Report 25106164 (Version 2)
Quarter: 2025Q2

REPORT INFORMATION
  Report Type: Spontaneous
  Country: US (occurrence: US)
  Receive Date: 20250321
  Receipt Date: 20250423
  Transmission Date: 20250717
  Serious: Yes (Other)
  Sender: BRISTOL-MYERS SQUIBB COMPANY
  Company Number: US-BRISTOL-MYERS SQUIBB COMPANY-2025-037113

PATIENT
  Age: 75 Year
  Sex: Female

DRUGS (2)
  1. LENALIDOMIDE [Suspect]
     Active Substance: LENALIDOMIDE
     Indication: Plasma cell myeloma
     Dosage: FREQUENCY: TAKE 1 CAPSULE BY MOUTH ONCE DAILY FOR 21 DAYS, FOLLOWED BY 7 DAYS OFF, THEN REPEAT.
     Route: 048
  2. LENALIDOMIDE [Suspect]
     Active Substance: LENALIDOMIDE
     Dosage: TAKE 1 CAPSULE BY MOUTH EVERY DAY FOR 21 DAYS, FOLLOWED BY 7 DAYS OFF, THEN REPEAT
     Route: 048

REACTIONS (9)
  - Pain in extremity [Unknown]
  - Diabetes mellitus [Unknown]
  - Neuropathy peripheral [Unknown]
  - Fatigue [Unknown]
  - Laziness [Unknown]
  - Weight increased [Unknown]
  - Constipation [Unknown]
  - Insomnia [Unknown]
  - Product dose omission issue [Unknown]
